FAERS Safety Report 20748557 (Version 1)
Quarter: 2022Q2

REPORT INFORMATION
  Report Type: Report from Study
  Country: US (occurrence: US)
  Receive Date: 20220426
  Receipt Date: 20220426
  Transmission Date: 20220721
  Serious: No
  Sender: FDA-Public Use
  Company Number: US-CELGENE-USA-20220106881

PATIENT
  Age: 78 Year
  Sex: Female
  Weight: 50.348 kg

DRUGS (2)
  1. REVLIMID [Suspect]
     Active Substance: LENALIDOMIDE
     Indication: Plasma cell myeloma
     Route: 048
  2. FURADANTIN [Suspect]
     Active Substance: NITROFURANTOIN
     Indication: Product used for unknown indication
     Route: 048

REACTIONS (5)
  - Diarrhoea [Recovered/Resolved]
  - Eye pain [Unknown]
  - Muscle strain [Unknown]
  - Headache [Unknown]
  - Intentional product misuse [Unknown]
